FAERS Safety Report 5021462-5 (Version None)
Quarter: 2006Q2

REPORT INFORMATION
  Report Type: 
  Country: None (occurrence: None)
  Receive Date: 20060601
  Receipt Date: 20060308
  Transmission Date: 20061013
  Serious: No
  Sender: FDA-Public Use
  Company Number: 2006PV009916

PATIENT
  Age: 44 Year
  Sex: Female
  Weight: 157.3982 kg

DRUGS (7)
  1. BYETTA [Suspect]
     Indication: DIABETES MELLITUS NON-INSULIN-DEPENDENT
     Dosage: SEE IMAGE
     Route: 058
     Dates: start: 20050801, end: 20050901
  2. BYETTA [Suspect]
     Indication: DIABETES MELLITUS NON-INSULIN-DEPENDENT
     Dosage: SEE IMAGE
     Route: 058
     Dates: start: 20050901
  3. GLUCOPHAGE [Concomitant]
  4. ACTOS [Concomitant]
  5. GLUCOTROL [Concomitant]
  6. ACTOSPLUSMET [Concomitant]
  7. GLUCOTROL [Concomitant]

REACTIONS (1)
  - BLOOD GLUCOSE INCREASED [None]
